FAERS Safety Report 5916529-0 (Version None)
Quarter: 2008Q4

REPORT INFORMATION
  Report Type: 
  Country: None (occurrence: None)
  Receive Date: 20081013
  Receipt Date: 20081010
  Transmission Date: 20090506
  Serious: Yes (Hospitalization)
  Sender: FDA-Public Use
  Company Number: B0529271A

PATIENT
  Age: 60 Year
  Sex: Female

DRUGS (3)
  1. SAWACILLIN [Suspect]
     Indication: IDIOPATHIC THROMBOCYTOPENIC PURPURA
     Dosage: 750MG TWICE PER DAY
     Route: 048
     Dates: start: 20070905, end: 20070911
  2. CLARITHROMYCIN [Suspect]
     Indication: IDIOPATHIC THROMBOCYTOPENIC PURPURA
     Dosage: 400MG TWICE PER DAY
     Route: 048
     Dates: start: 20070905, end: 20070911
  3. LANSOPRAZOLE [Suspect]
     Indication: IDIOPATHIC THROMBOCYTOPENIC PURPURA
     Dosage: 30MG TWICE PER DAY
     Route: 048
     Dates: start: 20070905, end: 20070911

REACTIONS (3)
  - ERYTHEMA MULTIFORME [None]
  - PRURITUS [None]
  - RASH [None]
